FAERS Safety Report 4979428-7 (Version None)
Quarter: 2006Q2

REPORT INFORMATION
  Report Type: 
  Country: None (occurrence: None)
  Receive Date: 20060421
  Receipt Date: 20060412
  Transmission Date: 20061013
  Serious: Yes (Hospitalization)
  Sender: FDA-Public Use
  Company Number: US-MERCK-0604USA02433

PATIENT
  Age: 67 Year
  Sex: Male
  Weight: 95 kg

DRUGS (2)
  1. VIOXX [Suspect]
     Indication: ARTHRITIS
     Route: 048
     Dates: start: 20000601
  2. VIOXX [Suspect]
     Route: 048
     Dates: start: 20040401, end: 20041001

REACTIONS (36)
  - ANXIETY [None]
  - AORTIC ANEURYSM [None]
  - AORTIC VALVE DISEASE [None]
  - AORTIC VALVE STENOSIS [None]
  - BURSITIS [None]
  - CARDIAC MURMUR [None]
  - CHOLELITHIASIS [None]
  - CORONARY ARTERY DISEASE [None]
  - DEPRESSION [None]
  - DIABETIC NEUROPATHY [None]
  - DRUG INEFFECTIVE [None]
  - DYSLIPIDAEMIA [None]
  - ENTERITIS [None]
  - EXTRASYSTOLES [None]
  - FALL [None]
  - FEELING ABNORMAL [None]
  - HAEMATURIA [None]
  - HYPERTENSION [None]
  - HYPOKALAEMIA [None]
  - HYPOMAGNESAEMIA [None]
  - INSOMNIA [None]
  - LUMBAR RADICULOPATHY [None]
  - MUSCULOSKELETAL STIFFNESS [None]
  - NEPHROLITHIASIS [None]
  - NEUROPATHY PERIPHERAL [None]
  - NOCTURIA [None]
  - OEDEMA PERIPHERAL [None]
  - OSTEOARTHRITIS [None]
  - PALPITATIONS [None]
  - PERIODIC LIMB MOVEMENT DISORDER [None]
  - RHEUMATOID ARTHRITIS [None]
  - SLEEP APNOEA SYNDROME [None]
  - SPINAL CORD COMPRESSION [None]
  - SYNCOPE [None]
  - VENTRICULAR HYPERTROPHY [None]
  - WOUND [None]
